FAERS Safety Report 15978525 (Version 2)
Quarter: 2019Q1

REPORT INFORMATION
  Report Type: Report from Study
  Country: US (occurrence: US)
  Receive Date: 20190219
  Receipt Date: 20190220
  Transmission Date: 20190418
  Serious: No
  Sender: FDA-Public Use
  Company Number: US-ROCHE-2266619

PATIENT
  Sex: Male

DRUGS (1)
  1. OCREVUS [Suspect]
     Active Substance: OCRELIZUMAB
     Indication: RELAPSING-REMITTING MULTIPLE SCLEROSIS
     Route: 065
     Dates: start: 20180803

REACTIONS (7)
  - Cough [Not Recovered/Not Resolved]
  - Visual impairment [Unknown]
  - Nasopharyngitis [Not Recovered/Not Resolved]
  - Infective glossitis [Unknown]
  - Malaise [Not Recovered/Not Resolved]
  - Eye disorder [Unknown]
  - Paranasal sinus discomfort [Not Recovered/Not Resolved]
